FAERS Safety Report 9376205 (Version 1)
Quarter: 2013Q2

REPORT INFORMATION
  Report Type: Spontaneous
  Country: ES (occurrence: ES)
  Receive Date: 20130630
  Receipt Date: 20130630
  Transmission Date: 20140414
  Serious: Yes (Hospitalization)
  Sender: FDA-Public Use
  Company Number: ES-SANOFI-AVENTIS-2013SA062608

PATIENT
  Age: 73 Year
  Sex: Male

DRUGS (1)
  1. CLEXANE [Suspect]
     Indication: ACUTE MYOCARDIAL INFARCTION
     Route: 058
     Dates: start: 20130428, end: 20130505

REACTIONS (3)
  - Intracardiac thrombus [Recovered/Resolved with Sequelae]
  - Drug ineffective [Recovered/Resolved with Sequelae]
  - Embolic stroke [Recovered/Resolved with Sequelae]
